FAERS Safety Report 4672837-5 (Version None)
Quarter: 2005Q2

REPORT INFORMATION
  Report Type: 
  Country: None (occurrence: None)
  Receive Date: 20050524
  Receipt Date: 20050308
  Transmission Date: 20051028
  Serious: Yes (Other)
  Sender: FDA-Public Use
  Company Number: PHEH2005US02949

PATIENT
  Sex: Female

DRUGS (1)
  1. ZOMETA [Suspect]
     Indication: OSTEITIS DEFORMANS
     Dosage: UNK, UNK
     Dates: start: 20050206

REACTIONS (3)
  - ALOPECIA [None]
  - HYPERTENSION [None]
  - HYPOTRICHOSIS [None]
